FAERS Safety Report 16355664 (Version 1)
Quarter: 2019Q2

REPORT INFORMATION
  Report Type: Report from Study
  Country: None (occurrence: CZ)
  Receive Date: 20190525
  Receipt Date: 20190525
  Transmission Date: 20190711
  Serious: Yes (Hospitalization)
  Sender: FDA-Public Use
  Company Number: CZ-ABBVIE-19K-217-2797393-00

PATIENT
  Age: 61 Year
  Sex: Male

DRUGS (1)
  1. HUMIRA [Suspect]
     Active Substance: ADALIMUMAB
     Indication: ANKYLOSING SPONDYLITIS
     Route: 058
     Dates: start: 20090513, end: 20190102

REACTIONS (2)
  - Ischaemic stroke [Recovered/Resolved]
  - Blindness unilateral [Recovered/Resolved]

NARRATIVE: CASE EVENT DATE: 20190107
